FAERS Safety Report 4723415-0 (Version None)
Quarter: 2005Q3

REPORT INFORMATION
  Report Type: 
  Country: None (occurrence: None)
  Receive Date: 20050725
  Receipt Date: 20050718
  Transmission Date: 20060218
  Serious: Yes (Hospitalization)
  Sender: FDA-Public Use
  Company Number: US-BRISTOL-MYERS SQUIBB COMPANY-13042957

PATIENT
  Age: 43 Year
  Sex: Male

DRUGS (4)
  1. ERBITUX [Suspect]
     Indication: TONSIL CANCER
     Route: 042
  2. CISPLATIN [Concomitant]
     Indication: TONSIL CANCER
  3. FLUOROURACIL [Concomitant]
     Indication: TONSIL CANCER
  4. RADIATION THERAPY [Concomitant]
     Indication: TONSIL CANCER

REACTIONS (1)
  - CEREBROVASCULAR ACCIDENT [None]
